FAERS Safety Report 23921765 (Version 1)
Quarter: 2024Q2

REPORT INFORMATION
  Report Type: Spontaneous
  Country: US (occurrence: US)
  Receive Date: 20240530
  Receipt Date: 20240530
  Transmission Date: 20240716
  Serious: Yes (Other)
  Sender: FDA-Public Use
  Company Number: US-JNJFOC-20240563668

PATIENT

DRUGS (1)
  1. ERLEADA [Suspect]
     Active Substance: APALUTAMIDE
     Indication: Prostate cancer
     Dosage: LAST DOSE ADMINISTRATION DATE: 21/MAY/2024
     Route: 048

REACTIONS (7)
  - Bladder obstruction [Unknown]
  - Alopecia [Unknown]
  - Breast enlargement [Unknown]
  - Aortic valve calcification [Unknown]
  - Muscle spasms [Unknown]
  - Fatigue [Unknown]
  - Rash [Unknown]
